FAERS Safety Report 5033915-4 (Version None)
Quarter: 2006Q2

REPORT INFORMATION
  Report Type: 
  Country: None (occurrence: None)
  Receive Date: 20060623
  Receipt Date: 20060111
  Transmission Date: 20061013
  Serious: Yes (Hospitalization)
  Sender: FDA-Public Use
  Company Number: FR-NOVOPROD-249973

PATIENT
  Age: 50 Year
  Sex: Male
  Weight: 66 kg

DRUGS (12)
  1. INSULIN DETEMIR FLEXPEN [Suspect]
     Indication: DIABETES MELLITUS INSULIN-DEPENDENT
     Dosage: 60 U, QD
     Route: 058
     Dates: start: 20050819
  2. NOVORAPID FLEXPEN [Suspect]
     Indication: DIABETES MELLITUS INSULIN-DEPENDENT
     Dosage: 88 U, QD
     Route: 058
     Dates: start: 20050820
  3. ROSUVASTATIN [Concomitant]
     Dosage: 10 MG, QD
     Route: 048
     Dates: start: 20050802, end: 20060109
  4. ACECLOFENAC [Concomitant]
     Dosage: 200 MG, QD
     Route: 048
     Dates: start: 20050301
  5. PARACETAMOL [Concomitant]
     Dosage: 1600 MG, QD
     Route: 048
     Dates: start: 19990101, end: 20060109
  6. CANDESARTAN [Concomitant]
     Dosage: 16 MG, QD
     Route: 048
     Dates: start: 20020101
  7. METHOTREXATE [Concomitant]
     Dosage: 15 MG/WEEK
     Route: 048
     Dates: start: 19930701
  8. OMEPRAZOLE [Concomitant]
     Dosage: 20 MG, QD
     Dates: start: 19900101
  9. SERTRALINE [Concomitant]
     Dosage: 100 MG, QD
     Dates: start: 20030101
  10. TESTOSTERONE ENANTATE [Concomitant]
     Dosage: 250 MG PER 3 WEEKS
     Dates: start: 19960101
  11. ADRAFINIL [Concomitant]
     Dosage: 900 MG, QD
     Dates: start: 20040101
  12. NORFLOXACIN [Concomitant]
     Dosage: 800 MG, QD
     Dates: start: 20051215, end: 20060104

REACTIONS (3)
  - HEPATIC ENZYME INCREASED [None]
  - HEPATITIS [None]
  - HYPERTRIGLYCERIDAEMIA [None]
